FAERS Safety Report 5186579-3 (Version None)
Quarter: 2006Q4

REPORT INFORMATION
  Report Type: 
  Country: None (occurrence: None)
  Receive Date: 20061213
  Receipt Date: 20061211
  Transmission Date: 20070319
  Serious: Yes (Death, Hospitalization)
  Sender: FDA-Public Use
  Company Number: 150536USA

PATIENT
  Age: 71 Year
  Sex: Male

DRUGS (10)
  1. FLUOROURACIL [Suspect]
     Indication: GASTROOESOPHAGEAL CANCER
     Dosage: CYCLE 1, DAY 1-5 OVER 120 HOURS Q 28 DAYS (1840 MG, 1 IN 1 D), INTRAVENOUS DRIP
     Route: 041
     Dates: start: 20061115, end: 20061120
  2. LISINOPRIL [Concomitant]
  3. METFORMIN HCL [Concomitant]
  4. PROPACET 100 [Concomitant]
  5. LOPERAMIDE HYDROCHLORIDE [Concomitant]
  6. LOMOTIL [Concomitant]
  7. ONDANSETRON [Concomitant]
  8. XYLOXYLIN [Concomitant]
  9. PROCHLORPERAZINE EDISYLATE [Concomitant]
  10. SUCRALFATE [Concomitant]

REACTIONS (24)
  - ALPHA HAEMOLYTIC STREPTOCOCCAL INFECTION [None]
  - ASTHENIA [None]
  - ATELECTASIS [None]
  - BACTERIAL INFECTION [None]
  - ESCHERICHIA INFECTION [None]
  - GASTROINTESTINAL HAEMORRHAGE [None]
  - GASTROINTESTINAL ISCHAEMIA [None]
  - GENERAL PHYSICAL HEALTH DETERIORATION [None]
  - HEART RATE INCREASED [None]
  - HYPOTENSION [None]
  - INTESTINAL INFARCTION [None]
  - INTESTINAL PERFORATION [None]
  - LACTIC ACIDOSIS [None]
  - MULTI-ORGAN FAILURE [None]
  - PLEURAL EFFUSION [None]
  - REFUSAL OF TREATMENT BY RELATIVE [None]
  - RESPIRATORY DISTRESS [None]
  - SALMONELLOSIS [None]
  - SEPSIS [None]
  - SHOCK [None]
  - SMALL INTESTINAL OBSTRUCTION [None]
  - STAPHYLOCOCCAL INFECTION [None]
  - VASOCONSTRICTION [None]
  - VENOUS THROMBOSIS [None]
